FAERS Safety Report 10153396 (Version 1)
Quarter: 2014Q2

REPORT INFORMATION
  Report Type: Spontaneous
  Country: US (occurrence: US)
  Receive Date: 20140505
  Receipt Date: 20140505
  Transmission Date: 20141212
  Serious: No
  Sender: FDA-Public Use
  Company Number: US-ASTRAZENECA-2013SE68305

PATIENT
  Age: 41 Year
  Sex: Male
  Weight: 95.3 kg

DRUGS (2)
  1. OMEPRAZOLE [Suspect]
     Indication: DYSPEPSIA
     Route: 048
     Dates: start: 2011
  2. WELBUTRIN XR [Concomitant]
     Indication: ANXIETY
     Dosage: NR
     Route: 048
     Dates: start: 201306

REACTIONS (2)
  - Anxiety [Unknown]
  - Drug screen false positive [Unknown]
